FAERS Safety Report 15761202 (Version 1)
Quarter: 2018Q4

REPORT INFORMATION
  Report Type: Spontaneous
  Country: GB (occurrence: GB)
  Receive Date: 20181226
  Receipt Date: 20181226
  Transmission Date: 20190205
  Serious: Yes (Hospitalization)
  Sender: FDA-Public Use
  Company Number: GB-PFIZER INC-711202

PATIENT
  Age: 55 Year
  Sex: Male

DRUGS (2)
  1. OXALIPLATIN. [Suspect]
     Active Substance: OXALIPLATIN
     Dosage: UNK, ADMINISTERED ONCE PER CYCLE
  2. XELODA [Suspect]
     Active Substance: CAPECITABINE
     Dosage: UNK, ADMINISTERED ONCE PER CYCLE

REACTIONS (1)
  - Arterial thrombosis [Unknown]
